FAERS Safety Report 5296629-1 (Version None)
Quarter: 2007Q2

REPORT INFORMATION
  Report Type: 
  Country: None (occurrence: None)
  Receive Date: 20070413
  Receipt Date: 20070403
  Transmission Date: 20071010
  Serious: Yes (Other)
  Sender: FDA-Public Use
  Company Number: FR-PFIZER INC-2007004422

PATIENT
  Sex: Female
  Weight: 50 kg

DRUGS (6)
  1. LYRICA [Suspect]
     Indication: FIBROMYALGIA
  2. TETRAZEPAM [Concomitant]
     Indication: FIBROMYALGIA
     Route: 048
  3. LAMALINE [Concomitant]
     Indication: FIBROMYALGIA
     Route: 048
  4. LORMETAZEPAM [Concomitant]
     Indication: FIBROMYALGIA
     Route: 048
  5. PARACETAMOL [Concomitant]
     Indication: FIBROMYALGIA
     Route: 048
  6. CLONAZEPAM [Concomitant]
     Indication: FIBROMYALGIA
     Route: 048

REACTIONS (1)
  - MYALGIA [None]
